FAERS Safety Report 9443215 (Version 1)
Quarter: 2013Q3

REPORT INFORMATION
  Report Type: Spontaneous
  Country: FR (occurrence: FR)
  Receive Date: 20130806
  Receipt Date: 20130806
  Transmission Date: 20140515
  Serious: Yes (Death)
  Sender: FDA-Public Use
  Company Number: FR-NAPPMUNDI-GBR-2013-0015199

PATIENT
  Age: 86 Year
  Sex: Male

DRUGS (4)
  1. OXYNORM 10MG/ML SOLUTION INJECTABLE [Suspect]
     Dosage: 20 MG, DAILY
     Route: 051
  2. CHEMOTHERAPEUTICS [Concomitant]
  3. ANTIHYPERTENSIVES [Concomitant]
  4. ANALGESICS [Concomitant]

REACTIONS (1)
  - Prostate cancer [Fatal]
